FAERS Safety Report 11196457 (Version 2)
Quarter: 2016Q1

REPORT INFORMATION
  Report Type: Spontaneous
  Country: US (occurrence: US)
  Receive Date: 20150617
  Receipt Date: 20160120
  Transmission Date: 20160525
  Serious: Yes (Hospitalization)
  Sender: FDA-Public Use
  Company Number: US-BAYER-2015-354526

PATIENT
  Age: 32 Year
  Sex: Female
  Weight: 126.98 kg

DRUGS (5)
  1. METRONIDAZOLE. [Concomitant]
     Active Substance: METRONIDAZOLE
  2. XANAX [Concomitant]
     Active Substance: ALPRAZOLAM
  3. MIRENA [Suspect]
     Active Substance: LEVONORGESTREL
     Indication: CONTRACEPTION
     Dosage: 20 MCG/24HR, CONT
     Route: 015
     Dates: start: 20100717, end: 20131016
  4. ADIPEX-P [Concomitant]
     Active Substance: PHENTERMINE HYDROCHLORIDE
     Dosage: UNK
     Dates: start: 20100924
  5. CYTOTEC [Concomitant]
     Active Substance: MISOPROSTOL

REACTIONS (5)
  - Device difficult to use [None]
  - Injury [None]
  - Embedded device [None]
  - Device issue [None]
  - Abdominal pain [None]

NARRATIVE: CASE EVENT DATE: 2011
